FAERS Safety Report 9354102 (Version 1)
Quarter: 2013Q2

REPORT INFORMATION
  Report Type: Spontaneous
  Country: US (occurrence: None)
  Receive Date: 20130613
  Receipt Date: 20130613
  Transmission Date: 20140414
  Serious: Yes (Other)
  Sender: FDA-Public Use
  Company Number: NY130201

PATIENT
  Sex: 0

DRUGS (3)
  1. PREVANTICS SWABSTICK [Suspect]
     Indication: PREOPERATIVE CARE
     Route: 061
     Dates: start: 201301, end: 201305
  2. PREVANTICS SWABSTICK [Suspect]
     Indication: PREOPERATIVE CARE
     Route: 061
     Dates: start: 201301, end: 201305
  3. BETADINE [Concomitant]

REACTIONS (4)
  - Erythema [None]
  - Rash [None]
  - Skin exfoliation [None]
  - Infusion site rash [None]
